FAERS Safety Report 15208371 (Version 1)
Quarter: 2020Q3

REPORT INFORMATION
  Report Type: Spontaneous
  Country: GB (occurrence: GB)
  Receive Date: 20180727
  Receipt Date: 20180727
  Transmission Date: 20201104
  Serious: Yes (Other)
  Sender: FDA-Public Use
  Company Number: IND-GB-009507513-1807GBR010430

PATIENT
  Age: 73 Year
  Sex: Female
  Weight: 59 kg

DRUGS (3)
  1. OESTROGEL [Concomitant]
     Active Substance: ESTRADIOL
     Dosage: UNK
  2. ETORICOXIB 30 MG FILM?COATED TABLETS [Suspect]
     Active Substance: ETORICOXIB
     Indication: ARTHRALGIA
     Dosage: 30 MG, UNK
     Route: 002
     Dates: start: 20170330, end: 20180703
  3. LEVOTHYROXINE SODIUM. [Concomitant]
     Active Substance: LEVOTHYROXINE SODIUM
     Dosage: UNK

REACTIONS (3)
  - Mouth ulceration [Recovered/Resolved]
  - Neutropenia [Recovered/Resolved]
  - Bicytopenia [Unknown]

NARRATIVE: CASE EVENT DATE: 20170330
